FAERS Safety Report 4429931-3 (Version None)
Quarter: 2004Q3

REPORT INFORMATION
  Report Type: 
  Country: None (occurrence: None)
  Receive Date: 20040820
  Receipt Date: 20040714
  Transmission Date: 20050211
  Serious: Yes (Other)
  Sender: FDA-Public Use
  Company Number: PHEH2004US07674

PATIENT
  Age: 2 Year
  Sex: Male
  Weight: 14 kg

DRUGS (5)
  1. ELIDEL [Suspect]
     Indication: ECZEMA
     Route: 061
     Dates: start: 20030410, end: 20031013
  2. ZITHROMAX [Concomitant]
  3. BIAXIN [Concomitant]
  4. OMNICEF [Concomitant]
  5. EUCERIN CREME [Concomitant]

REACTIONS (2)
  - NON-HODGKIN'S LYMPHOMA [None]
  - RESPIRATORY DISTRESS [None]
